FAERS Safety Report 13078631 (Version 1)
Quarter: 2017Q1

REPORT INFORMATION
  Report Type: Spontaneous
  Country: ES (occurrence: ES)
  Receive Date: 20170102
  Receipt Date: 20170102
  Transmission Date: 20170428
  Serious: Yes (Other)
  Sender: FDA-Public Use
  Company Number: ES-B. BRAUN MEDICAL INC.-1061432

PATIENT
  Age: 58 Year
  Sex: Female

DRUGS (11)
  1. XERISTAR [Concomitant]
     Active Substance: DULOXETINE HYDROCHLORIDE
  2. DEXAMETHASONE. [Concomitant]
     Active Substance: DEXAMETHASONE
  3. TEGRETOL [Concomitant]
     Active Substance: CARBAMAZEPINE
  4. LIDOCAINE. [Suspect]
     Active Substance: LIDOCAINE
     Route: 042
     Dates: start: 20161121
  5. OPTOVITE [Concomitant]
  6. OMEPRAZOLE. [Concomitant]
     Active Substance: OMEPRAZOLE
  7. DOGMATIL [Concomitant]
     Active Substance: SULPIRIDE
  8. LYRICA [Concomitant]
     Active Substance: PREGABALIN
  9. FEROGRADUMEET [Concomitant]
  10. ZOFRAN [Concomitant]
     Active Substance: ONDANSETRON HYDROCHLORIDE
  11. VALIUM [Concomitant]
     Active Substance: DIAZEPAM

REACTIONS (3)
  - Nystagmus [Recovered/Resolved]
  - Dizziness [Recovered/Resolved]
  - Nausea [Recovered/Resolved]

NARRATIVE: CASE EVENT DATE: 20161129
